FAERS Safety Report 5496819-9 (Version None)
Quarter: 2007Q4

REPORT INFORMATION
  Report Type: 
  Country: None (occurrence: None)
  Receive Date: 20071025
  Receipt Date: 20070821
  Transmission Date: 20080405
  Serious: No
  Sender: FDA-Public Use
  Company Number: A0673535A

PATIENT
  Age: 81 Year
  Sex: Female

DRUGS (3)
  1. ADVAIR DISKUS 100/50 [Suspect]
     Indication: ASTHMA
     Route: 055
     Dates: start: 20070120, end: 20070201
  2. ALBUTEROL [Concomitant]
  3. AZITHROMYCIN [Concomitant]

REACTIONS (3)
  - PRURITUS GENERALISED [None]
  - RASH [None]
  - URTICARIA [None]
